FAERS Safety Report 20599584 (Version 4)
Quarter: 2022Q3

REPORT INFORMATION
  Report Type: Spontaneous
  Country: US (occurrence: US)
  Receive Date: 20220316
  Receipt Date: 20220825
  Transmission Date: 20221026
  Serious: Yes (Other)
  Sender: FDA-Public Use
  Company Number: US-BEH-2022143137

PATIENT
  Age: 20 Year
  Sex: Male
  Weight: 88.435 kg

DRUGS (8)
  1. HUMATE-P [Suspect]
     Active Substance: HUMAN COAGULATION FACTOR VIII/VON WILLEBRAND FACTOR COMPLEX
     Indication: Factor VIII deficiency
     Dosage: 5000 INTERNATIONAL UNIT, TIW
     Route: 042
     Dates: start: 201312
  2. HUMATE-P [Suspect]
     Active Substance: HUMAN COAGULATION FACTOR VIII/VON WILLEBRAND FACTOR COMPLEX
     Dosage: 5000 INTERNATIONAL UNIT, PRN
     Route: 042
     Dates: start: 201312
  3. HUMATE-P [Suspect]
     Active Substance: HUMAN COAGULATION FACTOR VIII/VON WILLEBRAND FACTOR COMPLEX
     Dosage: 2500 INTERNATIONAL UNIT, TIW- MONDAY, WEDNESDAY, FRIDAY
     Route: 042
     Dates: start: 201906
  4. HUMATE-P [Suspect]
     Active Substance: HUMAN COAGULATION FACTOR VIII/VON WILLEBRAND FACTOR COMPLEX
     Dosage: 4000 INTERNATIONAL UNIT, PRN
     Route: 042
     Dates: start: 201906
  5. HUMATE-P [Suspect]
     Active Substance: HUMAN COAGULATION FACTOR VIII/VON WILLEBRAND FACTOR COMPLEX
     Dosage: 2962 INTERNATIONAL UNIT
     Route: 042
     Dates: start: 201606
  6. HUMATE-P [Suspect]
     Active Substance: HUMAN COAGULATION FACTOR VIII/VON WILLEBRAND FACTOR COMPLEX
     Dosage: 2500 INTERNATIONAL UNIT, TIW
     Route: 042
     Dates: start: 20220507
  7. HUMATE-P [Suspect]
     Active Substance: HUMAN COAGULATION FACTOR VIII/VON WILLEBRAND FACTOR COMPLEX
     Dosage: 2500 INTERNATIONAL UNIT, PRN
     Route: 042
     Dates: start: 20220507
  8. HUMATE-P [Suspect]
     Active Substance: HUMAN COAGULATION FACTOR VIII/VON WILLEBRAND FACTOR COMPLEX
     Dosage: 4000 INTERNATIONAL UNIT, PRN
     Route: 042
     Dates: start: 20220720

REACTIONS (10)
  - Haemorrhage [Unknown]
  - Haemorrhage [Unknown]
  - Haemarthrosis [Unknown]
  - Haemorrhage [Unknown]
  - Haemorrhage [Unknown]
  - Haemorrhage [Unknown]
  - Haemarthrosis [Unknown]
  - Haemorrhage [Unknown]
  - Haemarthrosis [Unknown]
  - Haemorrhage [Unknown]

NARRATIVE: CASE EVENT DATE: 20220426
